FAERS Safety Report 17725765 (Version 1)
Quarter: 2020Q2

REPORT INFORMATION
  Report Type: Spontaneous
  Country: CH (occurrence: CH)
  Receive Date: 20200429
  Receipt Date: 20200429
  Transmission Date: 20200714
  Serious: Yes (Death, Other)
  Sender: FDA-Public Use
  Company Number: CH-JNJFOC-20200432974

PATIENT
  Age: 72 Year
  Sex: Male

DRUGS (6)
  1. DUROGESIC MATRIX [Suspect]
     Active Substance: FENTANYL
     Indication: PAIN
     Dosage: PATCH 25 MCG/H : 1 TOUS LES 3 JOURS
     Route: 062
     Dates: start: 20200323, end: 20200403
  2. DOXYCYCLINE. [Suspect]
     Active Substance: DOXYCYCLINE
     Indication: CORONAVIRUS INFECTION
     Route: 048
     Dates: start: 20200322, end: 20200329
  3. PLAQUENIL                          /00072602/ [Suspect]
     Active Substance: HYDROXYCHLOROQUINE DIPHOSPHATE
     Indication: CORONAVIRUS INFECTION
     Dosage: 800 MG/JOUR DU 22 AU 23.03.2020, 400 MG/JOUR DU 24 AU 26.03.2020, 600 MG/JOUR DU 26 AU 30.03.2020
     Route: 048
     Dates: start: 20200322, end: 20200330
  4. AZITHROMYCINE [Suspect]
     Active Substance: AZITHROMYCIN
     Indication: CORONAVIRUS INFECTION
     Route: 048
     Dates: start: 20200328, end: 20200401
  5. AMOXICILLIN AND CLAVULANATE POTASSIUM [Suspect]
     Active Substance: AMOXICILLIN\CLAVULANATE POTASSIUM
     Indication: PNEUMONIA
     Route: 041
     Dates: start: 20200323, end: 20200330
  6. ENOXAPARIN [Suspect]
     Active Substance: ENOXAPARIN
     Indication: ANTICOAGULANT THERAPY
     Route: 058
     Dates: start: 20200321, end: 20200330

REACTIONS (4)
  - Death [Fatal]
  - Haemolytic anaemia [Not Recovered/Not Resolved]
  - Thrombocytopenia [Not Recovered/Not Resolved]
  - Thrombotic microangiopathy [Not Recovered/Not Resolved]

NARRATIVE: CASE EVENT DATE: 20200327
